FAERS Safety Report 15878192 (Version 1)
Quarter: 2019Q1

REPORT INFORMATION
  Report Type: Spontaneous
  Country: DE (occurrence: DE)
  Receive Date: 20190128
  Receipt Date: 20190128
  Transmission Date: 20190417
  Serious: Yes (Other)
  Sender: FDA-Public Use
  Company Number: DE-SAKK-2019SA018306AA

PATIENT
  Sex: Male

DRUGS (6)
  1. ASA [Concomitant]
     Active Substance: ASPIRIN
  2. PANTOPRAZOLE [Concomitant]
     Active Substance: PANTOPRAZOLE
  3. CLOPIDOGREL [Concomitant]
     Active Substance: CLOPIDOGREL BISULFATE
  4. TELMISARTAN. [Concomitant]
     Active Substance: TELMISARTAN
  5. BISOPROLOL [Concomitant]
     Active Substance: BISOPROLOL
  6. PRALUENT [Suspect]
     Active Substance: ALIROCUMAB
     Dosage: UNK
     Route: 058
     Dates: start: 201711

REACTIONS (4)
  - Blood creatine phosphokinase increased [Unknown]
  - Stent placement [Unknown]
  - Myalgia [Unknown]
  - Fatigue [Unknown]
